FAERS Safety Report 5047816-9 (Version None)
Quarter: 2006Q3

REPORT INFORMATION
  Report Type: 
  Country: None (occurrence: None)
  Receive Date: 20060710
  Receipt Date: 20060710
  Transmission Date: 20061208
  Serious: Yes (Hospitalization)
  Sender: FDA-Public Use
  Company Number: None

PATIENT
  Age: 62 Year
  Sex: Male

DRUGS (9)
  1. AMOXICILLIN + CLAVULANATE POTASSIUM [Suspect]
     Indication: CELLULITIS
     Dosage: PO BID
     Route: 048
     Dates: start: 20060606, end: 20060610
  2. KEFLEX [Concomitant]
  3. AUGMENTIN '125' [Concomitant]
  4. LACTULOSE [Concomitant]
  5. SPIRONOLACTONE [Concomitant]
  6. OMEPRAZOLE [Concomitant]
  7. POTASSIUM CHLORIDE [Concomitant]
  8. ALADERM [Concomitant]
  9. ZINC OXIDE [Concomitant]

REACTIONS (5)
  - EXCORIATION [None]
  - HYPERSENSITIVITY [None]
  - PAIN OF SKIN [None]
  - RASH PRURITIC [None]
  - SKIN EXFOLIATION [None]
